FAERS Safety Report 6877238-7 (Version None)
Quarter: 2010Q3

REPORT INFORMATION
  Report Type: 
  Country: None (occurrence: None)
  Receive Date: 20100727
  Receipt Date: 20090812
  Transmission Date: 20110219
  Serious: No
  Sender: FDA-Public Use
  Company Number: US-ABBOTT-09P-163-0591325-00

PATIENT
  Sex: Female
  Weight: 69.462 kg

DRUGS (4)
  1. SYNTHROID [Suspect]
     Indication: HYPOTHYROIDISM
     Dosage: VARYING DOSES
     Dates: start: 20050101
  2. CYTOMEL [Concomitant]
     Indication: HYPOTHYROIDISM
  3. CALCIUM [Concomitant]
     Indication: MINERAL SUPPLEMENTATION
  4. MULTIPLE VITAMINS [Concomitant]
     Indication: ROUTINE HEALTH MAINTENANCE

REACTIONS (2)
  - BLOOD THYROID STIMULATING HORMONE ABNORMAL [None]
  - VITAMIN D DECREASED [None]
